FAERS Safety Report 6259381-9 (Version None)
Quarter: 2009Q3

REPORT INFORMATION
  Report Type: 
  Country: None (occurrence: None)
  Receive Date: 20090706
  Receipt Date: 20090619
  Transmission Date: 20100115
  Serious: Yes (Other)
  Sender: FDA-Public Use
  Company Number: 2009AL004041

PATIENT
  Age: 61 Year
  Sex: Female

DRUGS (4)
  1. DIGOXIN [Suspect]
     Dosage: 0.125M, DAILY, PO
     Route: 048
  2. BUMETADINE [Concomitant]
  3. LEVOTHROID [Concomitant]
  4. SPIRIVA [Concomitant]

REACTIONS (6)
  - ABDOMINAL DISTENSION [None]
  - ARTHRITIS [None]
  - CARDIAC FAILURE CONGESTIVE [None]
  - CARDIOMYOPATHY [None]
  - EMPHYSEMA [None]
  - JOINT INJURY [None]
